FAERS Safety Report 8908156 (Version 1)
Quarter: 2012Q4

REPORT INFORMATION
  Report Type: 
  Country: DE (occurrence: DE)
  Receive Date: 20121114
  Receipt Date: 20121114
  Transmission Date: 20130627
  Serious: Yes (Hospitalization)
  Sender: FDA-Public Use
  Company Number: PHHO2012DE013639

PATIENT
  Age: 61 Year
  Sex: Male
  Weight: 57 kg

DRUGS (5)
  1. TACROLIMUS [Suspect]
     Indication: LIVER TRANSPLANT
     Dosage: 4 mg, QD
     Route: 048
     Dates: start: 20120831, end: 20120901
  2. TACROLIMUS [Suspect]
     Dosage: 3 mg, BID
     Route: 048
     Dates: start: 20120922, end: 20120922
  3. TACROLIMUS [Suspect]
     Dosage: 5.5 mg, BID
     Route: 048
     Dates: start: 20121027
  4. PREDNISOLONE [Suspect]
     Indication: LIVER TRANSPLANT
     Dosage: 15 mg, QD
     Route: 048
     Dates: start: 20120831, end: 20120901
  5. PREDNISOLONE [Suspect]
     Indication: IMMUNOSUPPRESSION
     Dosage: 5 mg, UNK
     Route: 048
     Dates: start: 20121025

REACTIONS (3)
  - Diarrhoea [Not Recovered/Not Resolved]
  - Vomiting [Not Recovered/Not Resolved]
  - Haematoma [Recovered/Resolved]
